FAERS Safety Report 19007402 (Version 2)
Quarter: 2021Q3

REPORT INFORMATION
  Report Type: Spontaneous
  Country: US (occurrence: US)
  Receive Date: 20210315
  Receipt Date: 20210719
  Transmission Date: 20211014
  Serious: Yes (Hospitalization, Other)
  Sender: FDA-Public Use
  Company Number: US-009507513-2103USA003548

PATIENT
  Age: 50 Year
  Sex: Female

DRUGS (3)
  1. KEYTRUDA [Suspect]
     Active Substance: PEMBROLIZUMAB
     Indication: METASTATIC MALIGNANT MELANOMA
     Dosage: 200 MG INTRAVENOUSLY ONCE EVERY 3 WEEKS; 5 CYCLES
     Route: 042
  2. VEMURAFENIB. [Suspect]
     Active Substance: VEMURAFENIB
     Indication: METASTATIC MALIGNANT MELANOMA
     Dosage: 960 MG TWICE DAILY
     Route: 048
  3. VEMURAFENIB. [Suspect]
     Active Substance: VEMURAFENIB
     Dosage: 480 MG TWICE DAILY
     Route: 048

REACTIONS (1)
  - Drug reaction with eosinophilia and systemic symptoms [Recovered/Resolved]
